FAERS Safety Report 7641610-8 (Version None)
Quarter: 2011Q3

REPORT INFORMATION
  Report Type: 
  Country: None (occurrence: None)
  Receive Date: 20110728
  Receipt Date: 20110708
  Transmission Date: 20111222
  Serious: Yes (Death)
  Sender: FDA-Public Use
  Company Number: US-GLAXOSMITHKLINE-A0694271A

PATIENT
  Age: 61 Year
  Sex: Male
  Weight: 113.2 kg

DRUGS (10)
  1. TRAMADOL HCL [Concomitant]
     Indication: PAIN
  2. FLOVENT [Concomitant]
  3. FLOMAX [Concomitant]
  4. AVANDIA [Suspect]
     Indication: TYPE 2 DIABETES MELLITUS
     Dosage: 4MG PER DAY
     Route: 048
     Dates: start: 20031210, end: 20071105
  5. INSULIN [Concomitant]
     Indication: DIABETES MELLITUS
  6. ADVAIR DISKUS 100/50 [Concomitant]
  7. GATIFLOXACIN [Concomitant]
     Indication: ANTIBIOTIC THERAPY
  8. ENALAPRIL MALEATE [Concomitant]
  9. ACEON [Concomitant]
  10. ALPRAZOLAM [Concomitant]

REACTIONS (3)
  - CARDIAC FAILURE CONGESTIVE [None]
  - MYOCARDIAL INFARCTION [None]
  - CEREBROVASCULAR ACCIDENT [None]
